FAERS Safety Report 5501194-7 (Version None)
Quarter: 2007Q4

REPORT INFORMATION
  Report Type: 
  Country: None (occurrence: None)
  Receive Date: 20071029
  Receipt Date: 20071017
  Transmission Date: 20080405
  Serious: Yes (Other)
  Sender: FDA-Public Use
  Company Number: ES-PFIZER INC-2007086841

PATIENT
  Age: 62 Year
  Sex: Female

DRUGS (6)
  1. VFEND [Suspect]
     Route: 042
  2. PIPERACILLIN AND TAZOBACTAM [Suspect]
     Route: 042
     Dates: start: 20070911, end: 20070913
  3. OMEPRAZOLE [Concomitant]
     Dosage: DAILY DOSE:20MG
     Route: 048
  4. METAMIZOLE [Concomitant]
     Route: 042
  5. TORSEMIDE [Concomitant]
     Dosage: DAILY DOSE:10MG
     Route: 048
  6. CODEISAN [Concomitant]
     Dosage: DAILY DOSE:57.4MG
     Route: 048

REACTIONS (3)
  - HALLUCINATION, VISUAL [None]
  - SPEECH DISORDER [None]
  - VISUAL DISTURBANCE [None]
